FAERS Safety Report 8785429 (Version 1)
Quarter: 2012Q4

REPORT INFORMATION
  Report Type: 
  Country: RO (occurrence: RO)
  Receive Date: 20120914
  Receipt Date: 20120914
  Transmission Date: 20130627
  Serious: Yes (Other)
  Sender: FDA-Public Use
  Company Number: RO-BRISTOL-MYERS SQUIBB COMPANY-16925158

PATIENT
  Age: 47 Year
  Sex: Female

DRUGS (3)
  1. COUMADIN [Suspect]
     Indication: DEEP VEIN THROMBOSIS
  2. COUMADIN [Suspect]
     Indication: HYPERCOAGULATION
  3. ACETYLSALICYLIC ACID [Suspect]

REACTIONS (2)
  - Cholestasis [Unknown]
  - Urticaria [Unknown]
